FAERS Safety Report 13026899 (Version 1)
Quarter: 2016Q4

REPORT INFORMATION
  Report Type: Spontaneous
  Country: US (occurrence: US)
  Receive Date: 20161214
  Receipt Date: 20161214
  Transmission Date: 20170207
  Serious: No
  Sender: FDA-Public Use
  Company Number: US-TEVA-720771ACC

PATIENT
  Sex: Female
  Weight: 97.61 kg

DRUGS (1)
  1. PLAN B [Suspect]
     Active Substance: LEVONORGESTREL
     Indication: POST COITAL CONTRACEPTION
     Route: 065

REACTIONS (1)
  - Nausea [Recovered/Resolved]
